FAERS Safety Report 6492630-0 (Version None)
Quarter: 2009Q4

REPORT INFORMATION
  Report Type: 
  Country: None (occurrence: None)
  Receive Date: 20091211
  Receipt Date: 20091211
  Transmission Date: 20100525
  Serious: Yes (Life-Threatening, Other)
  Sender: FDA-Public Use
  Company Number: None

PATIENT
  Age: 55 Year
  Sex: Female
  Weight: 83.9154 kg

DRUGS (2)
  1. CHANTIX [Suspect]
     Indication: SMOKING CESSATION THERAPY
     Dosage: 1/2 TABLET 1 A DAY 049; 1 TABLET A DAY 049
     Dates: start: 20080507
  2. CHANTIX [Suspect]
     Indication: SMOKING CESSATION THERAPY
     Dosage: 1/2 TABLET 1 A DAY 049; 1 TABLET A DAY 049
     Dates: start: 20080521

REACTIONS (2)
  - AGGRESSION [None]
  - SUICIDAL IDEATION [None]
